FAERS Safety Report 5278078-5 (Version None)
Quarter: 2007Q1

REPORT INFORMATION
  Report Type: 
  Country: None (occurrence: None)
  Receive Date: 20070321
  Receipt Date: 20070314
  Transmission Date: 20070707
  Serious: Yes (Other)
  Sender: FDA-Public Use
  Company Number: 07-00001

PATIENT
  Age: 57 Year
  Sex: Male

DRUGS (1)
  1. MITOMYCIN [Suspect]
     Indication: LARYNGEAL WEB
     Dosage: 0.4 MILLIGRAM/MILLILITERS, TOPICAL
     Route: 061

REACTIONS (1)
  - LARYNGEAL CANCER [None]
